FAERS Safety Report 6283872-8 (Version None)
Quarter: 2009Q3

REPORT INFORMATION
  Report Type: 
  Country: None (occurrence: None)
  Receive Date: 20090723
  Receipt Date: 20090723
  Transmission Date: 20100115
  Serious: Yes (Hospitalization, Disabling, Other)
  Sender: FDA-Public Use
  Company Number: None

PATIENT
  Age: 42 Year
  Sex: Female
  Weight: 85.7298 kg

DRUGS (1)
  1. MIRENA [Suspect]
     Indication: CONTRACEPTION
     Dates: start: 20070607, end: 20090720

REACTIONS (7)
  - ABDOMINAL PAIN [None]
  - ABNORMAL WITHDRAWAL BLEEDING [None]
  - BACK PAIN [None]
  - IUCD COMPLICATION [None]
  - IUD MIGRATION [None]
  - PAINFUL DEFAECATION [None]
  - UTERINE ATROPHY [None]
